FAERS Safety Report 8196218-5 (Version None)
Quarter: 2012Q1

REPORT INFORMATION
  Report Type: 
  Country: None (occurrence: None)
  Receive Date: 20120307
  Receipt Date: 20120307
  Transmission Date: 20120608
  Serious: Yes (Hospitalization)
  Sender: FDA-Public Use
  Company Number: None

PATIENT
  Sex: Male
  Weight: 71.2 kg

DRUGS (1)
  1. OFATUMUMAB [Suspect]
     Dosage: 4300 MG
     Dates: end: 20120306

REACTIONS (3)
  - PLEURAL INFECTION [None]
  - HYPOXIA [None]
  - RHINOVIRUS INFECTION [None]
